FAERS Safety Report 24404143 (Version 1)
Quarter: 2024Q4

REPORT INFORMATION
  Report Type: Spontaneous
  Country: US (occurrence: US)
  Receive Date: 20241007
  Receipt Date: 20241007
  Transmission Date: 20250115
  Serious: No
  Sender: LEO PHARM
  Company Number: US-LEO Pharma-373980

PATIENT
  Age: 48 Year
  Sex: Female

DRUGS (1)
  1. ADBRY [Suspect]
     Active Substance: TRALOKINUMAB-LDRM
     Indication: Dermatitis
     Dosage: THERAPY REPORTED AS ONGOING
     Route: 058
     Dates: start: 20240410

REACTIONS (1)
  - Injection site pain [Unknown]
